FAERS Safety Report 5571062-3 (Version None)
Quarter: 2007Q4

REPORT INFORMATION
  Report Type: 
  Country: None (occurrence: None)
  Receive Date: 20071221
  Receipt Date: 20071214
  Transmission Date: 20080405
  Serious: Yes (Hospitalization)
  Sender: FDA-Public Use
  Company Number: BE-ROCHE-531963

PATIENT
  Age: 55 Year
  Sex: Female
  Weight: 50 kg

DRUGS (3)
  1. BONIVA [Suspect]
     Indication: DRUG USE FOR UNKNOWN INDICATION
     Route: 048
     Dates: start: 20071003, end: 20071101
  2. CALCIUM NOS [Suspect]
     Indication: DRUG USE FOR UNKNOWN INDICATION
     Dosage: DOSAGE RECEIVED DAILY
     Route: 048
     Dates: start: 20071003, end: 20071101
  3. ISOTEN [Suspect]
     Indication: HYPERTENSION
     Dosage: DOSAGE RECEIVED DAILY
     Route: 048
     Dates: start: 20051206

REACTIONS (1)
  - ARRHYTHMIA SUPRAVENTRICULAR [None]
